FAERS Safety Report 5453258-4 (Version None)
Quarter: 2007Q3

REPORT INFORMATION
  Report Type: 
  Country: None (occurrence: None)
  Receive Date: 20070914
  Receipt Date: 20070904
  Transmission Date: 20080115
  Serious: Yes (Other)
  Sender: FDA-Public Use
  Company Number: PT-PFIZER INC-2007075038

PATIENT
  Age: 44 Year
  Sex: Female

DRUGS (6)
  1. LYRICA [Suspect]
     Indication: NEURALGIA
     Route: 048
  2. DRUG, UNSPECIFIED [Interacting]
  3. METANOR [Concomitant]
     Route: 048
  4. ADALGUR N [Concomitant]
     Route: 048
  5. XANAX [Concomitant]
     Route: 048
  6. TRAZODONE HCL [Concomitant]
     Route: 048

REACTIONS (2)
  - DRUG INTERACTION [None]
  - PSYCHOMOTOR HYPERACTIVITY [None]
